FAERS Safety Report 19476061 (Version 2)
Quarter: 2021Q3

REPORT INFORMATION
  Report Type: Spontaneous
  Country: US (occurrence: US)
  Receive Date: 20210630
  Receipt Date: 20210702
  Transmission Date: 20211014
  Serious: Yes (Other)
  Sender: FDA-Public Use
  Company Number: US-BAYER-2021-167153

PATIENT
  Age: 62 Year
  Sex: Male

DRUGS (1)
  1. INTERFERON BETA ? 1B [Suspect]
     Active Substance: INTERFERON BETA-1B
     Indication: TUMEFACTIVE MULTIPLE SCLEROSIS
     Dosage: UNKNOWN
     Route: 065

REACTIONS (1)
  - Multiple sclerosis relapse [None]
